FAERS Safety Report 16458942 (Version 1)
Quarter: 2019Q2

REPORT INFORMATION
  Report Type: Spontaneous
  Country: US (occurrence: US)
  Receive Date: 20190620
  Receipt Date: 20190620
  Transmission Date: 20190711
  Serious: No
  Sender: FDA-Public Use
  Company Number: US-THERAPEUTICSMD-2019TMD00857

PATIENT
  Sex: Female
  Weight: 53.06 kg

DRUGS (3)
  1. IMVEXXY [Suspect]
     Active Substance: ESTRADIOL
     Dosage: 10 ?G ^MORE THAN^ TWICE PER WEEK BEFORE BED
     Route: 067
     Dates: start: 2019, end: 2019
  2. IMVEXXY [Suspect]
     Active Substance: ESTRADIOL
     Dosage: 10 ?G, 2X/WEEK, BEFORE BED
     Route: 067
     Dates: start: 2019
  3. ^NEFETICINE^ [Concomitant]
     Dosage: 30 MG, 2X/DAY
     Route: 048

REACTIONS (1)
  - Vaginal disorder [Recovering/Resolving]

NARRATIVE: CASE EVENT DATE: 2019
